FAERS Safety Report 26172788 (Version 1)
Quarter: 2025Q4

REPORT INFORMATION
  Report Type: Other
  Country: CN (occurrence: CN)
  Receive Date: 20251218
  Receipt Date: 20251218
  Transmission Date: 20260117
  Serious: Yes (Hospitalization)
  Sender: NOVITIUM PHARMA
  Company Number: CN-NOVITIUM PHARMA-000410

PATIENT
  Age: 7 Month
  Sex: Female

DRUGS (2)
  1. HYDROXYCHLOROQUINE [Suspect]
     Active Substance: HYDROXYCHLOROQUINE
     Indication: Interstitial lung disease
  2. THYROXINE [Concomitant]
     Active Substance: LEVOTHYROXINE
     Indication: Brain-lung-thyroid syndrome

REACTIONS (1)
  - Disease progression [Unknown]
